FAERS Safety Report 12840352 (Version 13)
Quarter: 2019Q2

REPORT INFORMATION
  Report Type: Report from Study
  Country: CO (occurrence: CO)
  Receive Date: 20161012
  Receipt Date: 20190530
  Transmission Date: 20190711
  Serious: Yes (Other)
  Sender: FDA-Public Use
  Company Number: CO-SA-2016SA183208

PATIENT
  Age: 61 Year
  Sex: Female

DRUGS (1)
  1. ALEMTUZUMAB [Suspect]
     Active Substance: ALEMTUZUMAB
     Indication: MULTIPLE SCLEROSIS
     Dosage: 12 MG,QD
     Route: 041
     Dates: start: 20160116, end: 20160118

REACTIONS (11)
  - Leukopenia [Recovered/Resolved]
  - Lymphocyte count decreased [Not Recovered/Not Resolved]
  - Eosinophil count increased [Recovered/Resolved]
  - White blood cell count decreased [Recovered/Resolved]
  - Crystalluria [Recovered/Resolved]
  - Eosinophilia [Recovered/Resolved]
  - Lymphopenia [Not Recovered/Not Resolved]
  - Crystal urine present [Recovered/Resolved]
  - Blood thyroid stimulating hormone decreased [Unknown]
  - Blood creatinine increased [Recovered/Resolved]
  - Bacterial test positive [Recovered/Resolved]

NARRATIVE: CASE EVENT DATE: 201610
